FAERS Safety Report 19140715 (Version 2)
Quarter: 2021Q2

REPORT INFORMATION
  Report Type: Spontaneous
  Country: FR (occurrence: FR)
  Receive Date: 20210415
  Receipt Date: 20210531
  Transmission Date: 20210717
  Serious: Yes (Other)
  Sender: FDA-Public Use
  Company Number: FR-TEVA-2021-FR-1900515

PATIENT
  Age: 34 Year
  Sex: Male
  Weight: 69 kg

DRUGS (2)
  1. FINASTERIDE SANDOZ 1 MG, COMPRIME PELLICULE [Suspect]
     Active Substance: FINASTERIDE
     Indication: DIFFUSE ALOPECIA
     Dosage: 1MG
     Route: 048
     Dates: start: 201503, end: 201910
  2. MINOXIDIL. [Suspect]
     Active Substance: MINOXIDIL
     Indication: DIFFUSE ALOPECIA
     Dosage: 7DF
     Route: 003
     Dates: start: 201503

REACTIONS (7)
  - Fatigue [Not Recovered/Not Resolved]
  - Pruritus [Not Recovered/Not Resolved]
  - Erectile dysfunction [Not Recovered/Not Resolved]
  - Pruritus [Not Recovered/Not Resolved]
  - Depression [Not Recovered/Not Resolved]
  - Loss of libido [Not Recovered/Not Resolved]
  - Myalgia [Not Recovered/Not Resolved]

NARRATIVE: CASE EVENT DATE: 201602
